FAERS Safety Report 7863415-5 (Version None)
Quarter: 2011Q4

REPORT INFORMATION
  Report Type: 
  Country: None (occurrence: None)
  Receive Date: 20111027
  Receipt Date: 20101203
  Transmission Date: 20120403
  Serious: No
  Sender: FDA-Public Use
  Company Number: US-AMGEN INC.-KDL445310

PATIENT
  Age: 61 Year
  Sex: Female

DRUGS (2)
  1. ENBREL [Suspect]
     Indication: RHEUMATOID ARTHRITIS
     Dosage: 50 MG, QWK
     Route: 058
     Dates: start: 20100916
  2. ENBREL [Suspect]
     Dates: start: 20100916

REACTIONS (6)
  - ENDODONTIC PROCEDURE [None]
  - UPPER LIMB FRACTURE [None]
  - POSTOPERATIVE WOUND INFECTION [None]
  - DENTAL CARIES [None]
  - DEVICE BREAKAGE [None]
  - RHEUMATOID ARTHRITIS [None]
